FAERS Safety Report 25366995 (Version 2)
Quarter: 2025Q2

REPORT INFORMATION
  Report Type: Report from Study
  Country: CO (occurrence: CO)
  Receive Date: 20250528
  Receipt Date: 20250623
  Transmission Date: 20250716
  Serious: Yes (Other)
  Sender: TAKEDA
  Company Number: CO-TAKEDA-2025TUS049676

PATIENT
  Age: 49 Year
  Sex: Male
  Weight: 49 kg

DRUGS (2)
  1. VEDOLIZUMAB [Suspect]
     Active Substance: VEDOLIZUMAB
     Indication: Colitis ulcerative
  2. MESALAMINE [Suspect]
     Active Substance: MESALAMINE
     Indication: Product used for unknown indication

REACTIONS (7)
  - Diarrhoea haemorrhagic [Recovering/Resolving]
  - Rectal haemorrhage [Recovering/Resolving]
  - Weight increased [Unknown]
  - Proctalgia [Recovering/Resolving]
  - Gastrointestinal pain [Recovering/Resolving]
  - Abdominal distension [Recovering/Resolving]
  - Flatulence [Recovering/Resolving]

NARRATIVE: CASE EVENT DATE: 20250518
